FAERS Safety Report 4510357-9 (Version None)
Quarter: 2004Q4

REPORT INFORMATION
  Report Type: 
  Country: None (occurrence: None)
  Receive Date: 20041122
  Receipt Date: 20041115
  Transmission Date: 20050328
  Serious: Yes (Other)
  Sender: FDA-Public Use
  Company Number: 200415519BCC

PATIENT
  Sex: Female
  Weight: 55.7924 kg

DRUGS (10)
  1. ASPIRIN [Suspect]
     Indication: ARTHRALGIA
     Dosage: 650 MG, TOTAL DAILY, ORAL
     Route: 048
     Dates: start: 20000101
  2. PANCREASE [Concomitant]
  3. LANOXIN [Concomitant]
  4. ATENOLOL [Concomitant]
  5. HYDRALAZINE [Concomitant]
  6. FOLEX [Concomitant]
  7. XALATAN [Concomitant]
  8. ALPHAGAN [Concomitant]
  9. PREMARIN [Concomitant]
  10. XANAX [Concomitant]

REACTIONS (2)
  - ABDOMINAL PAIN [None]
  - INTESTINAL PERFORATION [None]
